FAERS Safety Report 6344762-5 (Version None)
Quarter: 2009Q3

REPORT INFORMATION
  Report Type: 
  Country: None (occurrence: None)
  Receive Date: 20090904
  Receipt Date: 20090827
  Transmission Date: 20100115
  Serious: Yes (Hospitalization, Other)
  Sender: FDA-Public Use
  Company Number: A-US2007-18698

PATIENT
  Age: 81 Year
  Sex: Male

DRUGS (5)
  1. TRACLEER [Suspect]
     Indication: PULMONARY ARTERIAL HYPERTENSION
     Dosage: 62.5 MG, BID, ORAL
     Route: 048
     Dates: start: 20070828, end: 20090409
  2. AMLODIPINE [Suspect]
     Dosage: 10 MG, ORAL
     Route: 048
  3. SPIRIVA [Concomitant]
  4. NORVASC [Concomitant]
  5. COUMADIN [Concomitant]

REACTIONS (14)
  - ANAEMIA [None]
  - ASTHENIA [None]
  - ATRIAL FIBRILLATION [None]
  - CARDIAC FAILURE CONGESTIVE [None]
  - FEELING ABNORMAL [None]
  - HEART RATE IRREGULAR [None]
  - HOT FLUSH [None]
  - NASAL DISCOMFORT [None]
  - NERVOUSNESS [None]
  - OFF LABEL USE [None]
  - PNEUMONIA [None]
  - RENAL DISORDER [None]
  - THROAT IRRITATION [None]
  - TREMOR [None]
